FAERS Safety Report 26049488 (Version 1)
Quarter: 2025Q4

REPORT INFORMATION
  Report Type: Spontaneous
  Country: US (occurrence: US)
  Receive Date: 20251115
  Receipt Date: 20251115
  Transmission Date: 20260118
  Serious: No
  Sender: NOVARTIS
  Company Number: US-002147023-NVSC2025US175669

PATIENT
  Age: 79 Year
  Sex: Female
  Weight: 61 kg

DRUGS (1)
  1. KISQALI [Suspect]
     Active Substance: RIBOCICLIB SUCCINATE
     Indication: Breast cancer
     Dosage: 400 MG, QD (21DS ON 7DS OFF OF 28DS CYCLE)
     Route: 048
     Dates: start: 20250110

REACTIONS (2)
  - Staphylococcal infection [Unknown]
  - Dizziness [Unknown]

NARRATIVE: CASE EVENT DATE: 20251110
